FAERS Safety Report 5266435-2 (Version None)
Quarter: 2007Q1

REPORT INFORMATION
  Report Type: 
  Country: None (occurrence: None)
  Receive Date: 20070315
  Receipt Date: 20070201
  Transmission Date: 20070707
  Serious: No
  Sender: FDA-Public Use
  Company Number: US-GLAXOSMITHKLINE-A0636321A

PATIENT
  Age: 60 Year
  Sex: Female
  Weight: 60.5 kg

DRUGS (3)
  1. ADVAIR DISKUS 100/50 [Suspect]
     Indication: BRONCHITIS
     Dosage: 2PUFF TWICE PER DAY
     Route: 055
     Dates: start: 20070113, end: 20070119
  2. MONISTAT [Concomitant]
  3. MYCOLOG [Concomitant]

REACTIONS (1)
  - COUGH [None]
